FAERS Safety Report 7022221-4 (Version None)
Quarter: 2010Q3

REPORT INFORMATION
  Report Type: 
  Country: None (occurrence: None)
  Receive Date: 20100928
  Receipt Date: 20100914
  Transmission Date: 20110219
  Serious: Yes (Death)
  Sender: FDA-Public Use
  Company Number: DSJ-2010-16689

PATIENT
  Age: 44 Year
  Sex: Male

DRUGS (3)
  1. OLMESARTAN MEDOXOMIL [Suspect]
     Indication: HYPERTENSION
     Dosage: 20 MG (20 MG, 1 IN 1 D), PER ORAL
     Route: 048
     Dates: start: 20100827, end: 20100912
  2. OLMESARTAN MEDOXOMIL [Suspect]
     Indication: PROTEINURIA
     Dosage: 20 MG (20 MG, 1 IN 1 D), PER ORAL
     Route: 048
     Dates: start: 20100827, end: 20100912
  3. ADALAT [Suspect]
     Indication: HYPERTENSION
     Dosage: 30 MG, PER ORAL
     Route: 048
     Dates: start: 20100827, end: 20100912

REACTIONS (4)
  - PROTEINURIA [None]
  - SUDDEN DEATH [None]
  - TRICUSPID VALVE INCOMPETENCE [None]
  - VENTRICULAR EXTRASYSTOLES [None]
